FAERS Safety Report 12008005 (Version 1)
Quarter: 2016Q1

REPORT INFORMATION
  Report Type: Report from Study
  Country: US (occurrence: US)
  Receive Date: 20160205
  Receipt Date: 20160205
  Transmission Date: 20160526
  Serious: No
  Sender: FDA-Public Use
  Company Number: US-BIOGEN-2014BI059614

PATIENT
  Sex: Female

DRUGS (5)
  1. AVONEX [Suspect]
     Active Substance: INTERFERON BETA-1A
     Route: 030
     Dates: start: 20060525, end: 20061227
  2. AVONEX [Suspect]
     Active Substance: INTERFERON BETA-1A
     Route: 030
     Dates: start: 20080222, end: 20110401
  3. AVONEX [Suspect]
     Active Substance: INTERFERON BETA-1A
     Route: 030
     Dates: start: 20120114
  4. AVONEX [Suspect]
     Active Substance: INTERFERON BETA-1A
     Route: 030
     Dates: start: 20130211, end: 20140726
  5. AVONEX [Suspect]
     Active Substance: INTERFERON BETA-1A
     Indication: MULTIPLE SCLEROSIS
     Route: 030

REACTIONS (18)
  - Appetite disorder [Unknown]
  - Arthralgia [Unknown]
  - Incorrect product storage [Recovered/Resolved]
  - Hair disorder [Unknown]
  - Pain [Unknown]
  - Dysphemia [Unknown]
  - Skin disorder [Unknown]
  - Weight increased [Unknown]
  - Pyrexia [Unknown]
  - Influenza like illness [Unknown]
  - Underdose [Unknown]
  - Memory impairment [Unknown]
  - Headache [Unknown]
  - Depression [Unknown]
  - Liver disorder [Unknown]
  - Coordination abnormal [Unknown]
  - Malaise [Not Recovered/Not Resolved]
  - Adverse reaction [Unknown]
